FAERS Safety Report 19874950 (Version 1)
Quarter: 2021Q3

REPORT INFORMATION
  Report Type: Spontaneous
  Country: ES (occurrence: ES)
  Receive Date: 20210923
  Receipt Date: 20210923
  Transmission Date: 20211014
  Serious: Yes (Hospitalization)
  Sender: FDA-Public Use
  Company Number: ES-MYLANLABS-2021M1064382

PATIENT
  Age: 90 Year
  Sex: Male

DRUGS (3)
  1. DEPRAX                             /00447702/ [Interacting]
     Active Substance: TRAZODONE HYDROCHLORIDE
     Indication: COGNITIVE DISORDER
     Dosage: 100 MILLIGRAM, QD
     Route: 048
     Dates: end: 20210412
  2. LORAZEPAM. [Interacting]
     Active Substance: LORAZEPAM
     Indication: COGNITIVE DISORDER
     Dosage: 1 MILLIGRAM, QD
     Route: 048
     Dates: start: 20210412, end: 20210412
  3. QUETIAPINE. [Suspect]
     Active Substance: QUETIAPINE
     Indication: COGNITIVE DISORDER
     Dosage: 25 MILLIGRAM, BID
     Route: 048

REACTIONS (3)
  - Disorientation [Recovered/Resolved]
  - Incorrect dose administered [Recovered/Resolved]
  - Drug interaction [Unknown]

NARRATIVE: CASE EVENT DATE: 20210412
